FAERS Safety Report 5849866-9 (Version None)
Quarter: 2008Q3

REPORT INFORMATION
  Report Type: 
  Country: None (occurrence: None)
  Receive Date: 20080818
  Receipt Date: 20080818
  Transmission Date: 20090109
  Serious: Yes (Other)
  Sender: FDA-Public Use
  Company Number: None

PATIENT
  Age: 32 Year
  Sex: Male
  Weight: 130.5 kg

DRUGS (4)
  1. BUSPIRONE HCL [Suspect]
     Indication: ANXIETY
     Dosage: 1 TAB 2 TIMES A DAY PO
     Route: 048
     Dates: start: 20080814, end: 20080816
  2. SERTRALINE [Suspect]
  3. ATENOLOL [Concomitant]
  4. XANAX [Concomitant]

REACTIONS (2)
  - FEAR [None]
  - HALLUCINATION [None]
